FAERS Safety Report 4777178-3 (Version None)
Quarter: 2005Q3

REPORT INFORMATION
  Report Type: 
  Country: None (occurrence: None)
  Receive Date: 20050923
  Receipt Date: 20041124
  Transmission Date: 20060218
  Serious: Yes (Other)
  Sender: FDA-Public Use
  Company Number: JP-ROCHE-387277

PATIENT
  Age: 12 Year
  Sex: Male

DRUGS (14)
  1. VESANOID [Suspect]
     Indication: ACUTE PROMYELOCYTIC LEUKAEMIA
     Route: 048
     Dates: start: 20040302, end: 20040315
  2. VESANOID [Suspect]
     Route: 048
     Dates: start: 20040316, end: 20040423
  3. VESANOID [Suspect]
     Route: 048
     Dates: start: 20040514, end: 20040521
  4. VESANOID [Suspect]
     Route: 048
     Dates: end: 20041115
  5. ACLARUBICIN HYDROCHLORIDE [Concomitant]
     Indication: ACUTE PROMYELOCYTIC LEUKAEMIA
     Dates: start: 20040224
  6. DIAMOX [Concomitant]
     Route: 048
     Dates: start: 20040301
  7. ALLOPURINOL [Concomitant]
     Route: 048
     Dates: start: 20040301
  8. COTRIM [Concomitant]
     Route: 048
     Dates: start: 20040301
  9. DIFLUCAN [Concomitant]
     Route: 048
     Dates: start: 20040301
  10. FIRSTCIN [Concomitant]
     Route: 042
     Dates: start: 20040302, end: 20040308
  11. PREDNISOLONE [Concomitant]
     Route: 048
     Dates: start: 20040302, end: 20040323
  12. DAUNOMYCIN [Concomitant]
     Route: 042
     Dates: start: 20040305, end: 20040305
  13. CYLOCIDE [Concomitant]
     Route: 042
     Dates: start: 20040305, end: 20040513
  14. NOVANTRONE [Concomitant]
     Route: 042
     Dates: start: 20040408, end: 20040511

REACTIONS (10)
  - CREATININE RENAL CLEARANCE DECREASED [None]
  - CYSTITIS HAEMORRHAGIC [None]
  - HEPATIC FUNCTION ABNORMAL [None]
  - HYPERCALCAEMIA [None]
  - NEPHRITIS INTERSTITIAL [None]
  - OLIGURIA [None]
  - PLATELET COUNT DECREASED [None]
  - RED BLOOD CELL COUNT DECREASED [None]
  - RENAL FAILURE [None]
  - WHITE BLOOD CELL COUNT DECREASED [None]
